FAERS Safety Report 6253475-X (Version None)
Quarter: 2009Q2

REPORT INFORMATION
  Report Type: 
  Country: None (occurrence: None)
  Receive Date: 20090629
  Receipt Date: 20090629
  Transmission Date: 20091009
  Serious: No
  Sender: FDA-Public Use
  Company Number: None

PATIENT
  Age: 40 Year
  Sex: Female
  Weight: 113.3993 kg

DRUGS (1)
  1. ZICAM NASAL SWABS [Suspect]
     Dosage: SWABS BID ENDOSINUSIA
     Route: 006
     Dates: start: 20060101, end: 20090130

REACTIONS (1)
  - ANOSMIA [None]
